FAERS Safety Report 22022276 (Version 1)
Quarter: 2023Q1

REPORT INFORMATION
  Report Type: Spontaneous
  Country: US (occurrence: None)
  Receive Date: 20230220
  Receipt Date: 20230220
  Transmission Date: 20230417
  Serious: Yes (Death)
  Sender: FDA-Public Use
  Company Number: None

PATIENT
  Age: 80 Year
  Sex: Male
  Weight: 78.88 kg

DRUGS (24)
  1. CYCLOPHOSPHAMIDE [Suspect]
     Active Substance: CYCLOPHOSPHAMIDE
     Indication: Plasma cell myeloma
     Dosage: OTHER FREQUENCY : EVERY FRIDAY;?
     Route: 048
  2. ACETAMINOPHEN [Concomitant]
     Active Substance: ACETAMINOPHEN
  3. ACYCLOVIR [Concomitant]
     Active Substance: ACYCLOVIR
  4. AMINOPHYLLINE [Concomitant]
     Active Substance: AMINOPHYLLINE
  5. ASPIRIN EC LOW [Concomitant]
  6. ATORVASTATIN [Concomitant]
     Active Substance: ATORVASTATIN
  7. BENZONATATE [Concomitant]
     Active Substance: BENZONATATE
  8. CACLIUM GLUCONATE [Concomitant]
  9. CITRATE DEXTROSE [Concomitant]
  10. DEXAMETHASONE [Concomitant]
     Active Substance: DEXAMETHASONE
  11. FENTANYL [Concomitant]
     Active Substance: FENTANYL
  12. FUROSEMIDE [Concomitant]
     Active Substance: FUROSEMIDE
  13. ISOSORBIDE [Concomitant]
     Active Substance: ISOSORBIDE
  14. ISOSRBIDE [Concomitant]
  15. MELATONIN [Concomitant]
     Active Substance: MELATONIN
  16. METOPROLOL [Concomitant]
     Active Substance: METOPROLOL
  17. MULTIVTIAMIN W/MINERAL [Concomitant]
  18. ONDANSETRON [Concomitant]
     Active Substance: ONDANSETRON
  19. PANTROPRAZOLE [Concomitant]
  20. SEVELAMER [Concomitant]
     Active Substance: SEVELAMER
  21. SODIUM BICARBONATE [Concomitant]
     Active Substance: SODIUM BICARBONATE
  22. TAMSULOSIN [Concomitant]
     Active Substance: TAMSULOSIN
  23. TRAMADOL [Concomitant]
     Active Substance: TRAMADOL
  24. ZOLPIDEM [Concomitant]
     Active Substance: ZOLPIDEM TARTRATE

REACTIONS (1)
  - Death [None]

NARRATIVE: CASE EVENT DATE: 20230124
